FAERS Safety Report 9219698 (Version 1)
Quarter: 2013Q2

REPORT INFORMATION
  Report Type: Spontaneous
  Country: US (occurrence: None)
  Receive Date: 20130408
  Receipt Date: 20130408
  Transmission Date: 20140414
  Serious: Yes (Hospitalization)
  Sender: FDA-Public Use
  Company Number: None

PATIENT
  Age: 72 Year
  Sex: Female
  Weight: 63.5 kg

DRUGS (29)
  1. LAPATINIB [Suspect]
     Indication: BREAST CANCER
     Dosage: 1000MG P.O. EVERYDAY
     Dates: start: 20130313
  2. TRASTUZUMAB [Suspect]
     Indication: BREAST CANCER
     Dosage: 8MG/KG IV LOADING DOSE
     Route: 042
     Dates: start: 20130313
  3. METOPROLOL TARTRATE [Concomitant]
  4. CRESTOR [Concomitant]
  5. FLUTICASONE [Concomitant]
  6. ASTEPRO [Concomitant]
  7. PRADAXA [Concomitant]
  8. DICLOFENAC [Concomitant]
  9. ALLEGRA [Concomitant]
  10. VITAMIN B-6 [Concomitant]
  11. VITAMIN A [Concomitant]
  12. VITAMIN D3 [Concomitant]
  13. THYMUS [Concomitant]
  14. CALCIUM CITRATE [Concomitant]
  15. MAGNESIUM [Concomitant]
  16. SELENIUM WITH VIT E [Concomitant]
  17. FISH OIL [Concomitant]
  18. SPIRULINA (VEGETABLE TABLET) [Concomitant]
  19. GREEN VARIANCE [Concomitant]
  20. ZINC [Concomitant]
  21. VITAMIN B-12 [Concomitant]
  22. BENICAR [Concomitant]
  23. VITALITY C [Concomitant]
  24. VITAMIN E [Concomitant]
  25. CO-Q10 [Concomitant]
  26. IMMUNITY SYSTEM WITH IP6 [Concomitant]
  27. RESERVAL FORTE [Concomitant]
  28. CHROMIUM PICOLINATE [Concomitant]
  29. MIRALAX [Suspect]

REACTIONS (6)
  - Renal failure acute [None]
  - Epistaxis [None]
  - Haematuria [None]
  - Nephrolithiasis [None]
  - Occult blood positive [None]
  - Muscular weakness [None]
